FAERS Safety Report 19030575 (Version 2)
Quarter: 2021Q2

REPORT INFORMATION
  Report Type: Report from Study
  Country: IT (occurrence: IT)
  Receive Date: 20210319
  Receipt Date: 20210527
  Transmission Date: 20210717
  Serious: Yes (Death)
  Sender: FDA-Public Use
  Company Number: IT-SHIONOGI, INC-2021000099

PATIENT
  Sex: Male

DRUGS (10)
  1. FETROJA [Suspect]
     Active Substance: CEFIDEROCOL SULFATE TOSYLATE
     Indication: PNEUMONIA
  2. COLISTIN [Concomitant]
     Active Substance: COLISTIN
     Indication: BACTERAEMIA
     Dosage: UNK
     Route: 065
  3. FETROJA [Suspect]
     Active Substance: CEFIDEROCOL SULFATE TOSYLATE
     Indication: ACINETOBACTER BACTERAEMIA
  4. FOSFOMYCIN [Concomitant]
     Active Substance: FOSFOMYCIN
     Indication: PNEUMONIA
     Dosage: UNKNOWN
     Route: 065
  5. FETROJA [Suspect]
     Active Substance: CEFIDEROCOL SULFATE TOSYLATE
     Indication: SEPSIS
     Dosage: 2 G, TID
     Route: 065
  6. FETROJA [Suspect]
     Active Substance: CEFIDEROCOL SULFATE TOSYLATE
     Indication: MULTIPLE-DRUG RESISTANCE
  7. COLISTIN [Concomitant]
     Active Substance: COLISTIN
     Indication: MULTIPLE-DRUG RESISTANCE
  8. TIGECYCLINE. [Concomitant]
     Active Substance: TIGECYCLINE
     Indication: PNEUMONIA
     Dosage: UNKNOWN
     Route: 065
  9. COLISTIN [Concomitant]
     Active Substance: COLISTIN
     Indication: PNEUMONIA
  10. COLISTIN [Concomitant]
     Active Substance: COLISTIN
     Indication: ACINETOBACTER BACTERAEMIA

REACTIONS (10)
  - Gastrointestinal haemorrhage [Fatal]
  - Haemophagocytic lymphohistiocytosis [Fatal]
  - Sepsis [Fatal]
  - Clostridium difficile colitis [Fatal]
  - Candida infection [Fatal]
  - Systemic candida [Fatal]
  - Staphylococcal infection [Fatal]
  - Hepatosplenic candidiasis [Fatal]
  - Device related infection [Fatal]
  - Prescribed overdose [Unknown]
